FAERS Safety Report 9321025 (Version 3)
Quarter: 2013Q3

REPORT INFORMATION
  Report Type: Spontaneous
  Country: US (occurrence: US)
  Receive Date: 20130531
  Receipt Date: 20130730
  Transmission Date: 20140515
  Serious: No
  Sender: FDA-Public Use
  Company Number: US-PFIZER INC-2013164747

PATIENT
  Age: 70 Year
  Sex: Female
  Weight: 55.33 kg

DRUGS (5)
  1. CHANTIX [Suspect]
     Indication: SMOKING CESSATION THERAPY
     Dosage: 0.5 MG, DAILY
     Dates: start: 20130607, end: 201306
  2. CHANTIX [Suspect]
     Dosage: 0.5 MG, 2X/DAY
     Dates: start: 201306, end: 20130612
  3. ACETYLSALICYLIC ACID/CAFFEINE/PARACETAMOL [Suspect]
     Indication: MUSCULOSKELETAL STIFFNESS
     Dosage: UNK
     Dates: start: 201306
  4. ACETYLSALICYLIC ACID/CAFFEINE/PARACETAMOL [Suspect]
     Indication: MUSCULOSKELETAL PAIN
  5. MELATONIN [Suspect]
     Indication: SLEEP DISORDER
     Dosage: UNK
     Dates: start: 201306

REACTIONS (7)
  - Somnolence [Recovered/Resolved]
  - Musculoskeletal pain [Recovered/Resolved]
  - Musculoskeletal stiffness [Recovered/Resolved]
  - Movement disorder [Recovered/Resolved]
  - Vomiting [Recovered/Resolved]
  - Neck pain [Unknown]
  - Drug ineffective [Unknown]
